FAERS Safety Report 12617800 (Version 1)
Quarter: 2016Q3

REPORT INFORMATION
  Report Type: Spontaneous
  Country: US (occurrence: US)
  Receive Date: 20160803
  Receipt Date: 20160803
  Transmission Date: 20161109
  Serious: No
  Sender: FDA-Public Use
  Company Number: US-BAYER-2016-145855

PATIENT
  Age: 6 Year
  Sex: Male
  Weight: 19.96 kg

DRUGS (2)
  1. CLARITIN [Suspect]
     Active Substance: LORATADINE
     Indication: URTICARIA
     Dosage: 2 DF, ONCE
     Route: 048
     Dates: start: 20160726, end: 20160726
  2. CLARITIN [Suspect]
     Active Substance: LORATADINE
     Indication: HYPERSENSITIVITY
     Dosage: 1 DF, QD AS NEEDED
     Route: 048

REACTIONS (2)
  - Product use issue [None]
  - Extra dose administered [None]

NARRATIVE: CASE EVENT DATE: 20160726
